FAERS Safety Report 5102736-6 (Version None)
Quarter: 2006Q3

REPORT INFORMATION
  Report Type: 
  Country: None (occurrence: None)
  Receive Date: 20060907
  Receipt Date: 20060901
  Transmission Date: 20061208
  Serious: Yes (Other)
  Sender: FDA-Public Use
  Company Number: 147337USA

PATIENT
  Sex: Male

DRUGS (5)
  1. PIMOZIDE [Suspect]
     Dosage: 2 MILLIGRAM ORAL
     Route: 048
     Dates: start: 20040101
  2. PARACETAMOL [Suspect]
     Indication: SLEEP DISORDER
     Dates: start: 20060818
  3. ARTICANE [Suspect]
     Indication: ANAESTHESIA
     Dates: start: 20060818
  4. ADRENALINE [Suspect]
     Dates: start: 20060818
  5. CLOZAPINE [Concomitant]

REACTIONS (1)
  - SLEEP DISORDER [None]
